FAERS Safety Report 25866942 (Version 2)
Quarter: 2025Q4

REPORT INFORMATION
  Report Type: Spontaneous
  Country: EU (occurrence: EU)
  Receive Date: 20251001
  Receipt Date: 20251014
  Transmission Date: 20260118
  Serious: Yes (Hospitalization, Other)
  Sender: AUROBINDO
  Company Number: EU-BRISTOL-MYERS SQUIBB COMPANY-2025-118053

PATIENT
  Age: 59 Year
  Sex: Male
  Weight: 58 kg

DRUGS (16)
  1. OXALIPLATIN [Suspect]
     Active Substance: OXALIPLATIN
     Indication: Oesophageal squamous cell carcinoma
     Dosage: 77 MILLIGRAM (BIWEEKLY) (LAST DOSE:03-APR-2025 00:00)
     Route: 042
     Dates: start: 20250123
  2. OPDIVO [Suspect]
     Active Substance: NIVOLUMAB
     Indication: Oesophageal squamous cell carcinoma
     Dosage: 240 MILLIGRAM (BIWEEKLY)
     Route: 042
     Dates: start: 20250123, end: 20250818
  3. FLUOROURACIL [Suspect]
     Active Substance: FLUOROURACIL
     Indication: Oesophageal squamous cell carcinoma
     Dosage: 4711 MILLIGRAM (BIWEEKLY)
     Route: 042
     Dates: start: 20250123, end: 20250818
  4. FINGOLIMOD [Concomitant]
     Active Substance: FINGOLIMOD
     Indication: Product used for unknown indication
     Dosage: 0.5 MILLIGRAM (PRIOR TO STUDY)
     Route: 048
     Dates: end: 20250831
  5. PREGABALIN [Concomitant]
     Active Substance: PREGABALIN
     Indication: Product used for unknown indication
     Dosage: 75 MILLIGRAM, TWO TIMES A DAY (PRIOR TO STUDY)
     Route: 048
     Dates: end: 20250831
  6. FOLIC ACID [Concomitant]
     Active Substance: FOLIC ACID
     Indication: Product used for unknown indication
     Dosage: 5 MILLIGRAM, ONCE A DAY (PRIOR TO STUDY)
     Route: 048
     Dates: end: 20250831
  7. PANTOPRAZOLE SODIUM [Concomitant]
     Active Substance: PANTOPRAZOLE SODIUM
     Indication: Oesophageal squamous cell carcinoma
     Dosage: 20 MILLIGRAM, ONCE A DAY (PRIOR TO STUDY)
     Route: 048
     Dates: end: 20250831
  8. DIETARY SUPPLEMENT [Concomitant]
     Active Substance: DIETARY SUPPLEMENT
     Indication: Oesophageal squamous cell carcinoma
     Dosage: 125 MILLILITER (PRIOR TO STUDY)
     Route: 048
     Dates: end: 20250831
  9. DEXAMETHASONE [Concomitant]
     Active Substance: DEXAMETHASONE
     Indication: Prophylaxis
     Dosage: 8 MILLIGRAM(ON DAYS OF INFUSION)FREQUENCY: 1
     Route: 042
     Dates: start: 20250123, end: 20250818
  10. GRANISETRON [Concomitant]
     Active Substance: GRANISETRON
     Indication: Prophylaxis
     Dosage: 3 MILLIGRAM(ON DAYS OF INFUSION)FREQUENCY: 1
     Route: 042
     Dates: start: 20250123, end: 20250818
  11. LEUCOVORIN [Concomitant]
     Active Substance: LEUCOVORIN\LEUCOVORIN CALCIUM
     Indication: Oesophageal squamous cell carcinoma
     Dosage: 362 MILLIGRAM (EVERY 15 DAYS)
     Route: 042
     Dates: start: 20250123, end: 20250818
  12. NALOXONE HYDROCHLORIDE\TILIDINE HYDROCHLORIDE [Concomitant]
     Active Substance: NALOXONE HYDROCHLORIDE\TILIDINE HYDROCHLORIDE
     Indication: Oesophageal squamous cell carcinoma
     Dosage: 50 MILLIGRAM, ONCE A DAY (AS NEEDED)
     Route: 048
     Dates: start: 20250602, end: 20250831
  13. DICLOFENAC [Concomitant]
     Active Substance: DICLOFENAC
     Indication: Oesophageal squamous cell carcinoma
     Dosage: 50 MILLIGRAM, ONCE A DAY(AS NEEDED)
     Route: 054
     Dates: start: 20250630, end: 20250831
  14. METAMIZOLE [Concomitant]
     Active Substance: METAMIZOLE
     Indication: Oesophageal squamous cell carcinoma
     Dosage: 1000 MILLIGRAM (AS NEEDED)DOSE: UNKNOWN, UNITS: GTT
     Route: 048
     Dates: start: 20250630, end: 20250831
  15. DEXAMETHASONE [Concomitant]
     Active Substance: DEXAMETHASONE
     Indication: Prophylaxis
     Dosage: 8 MILLIGRAM, ONCE A DAY(ON DAYS 2 + 3)FREQUENCY: 1
     Route: 048
     Dates: start: 20250124, end: 20250820
  16. GRANISETRON [Concomitant]
     Active Substance: GRANISETRON
     Indication: Prophylaxis
     Dosage: 2 MILLIGRAM, ONCE A DAY(AS NEEDED)
     Route: 048
     Dates: start: 20250123, end: 20250831

REACTIONS (4)
  - Immune-mediated enterocolitis [Recovered/Resolved]
  - Diarrhoea [Recovered/Resolved]
  - Hypotension [Unknown]
  - Weight decreased [Unknown]

NARRATIVE: CASE EVENT DATE: 20250801
